FAERS Safety Report 7646793-1 (Version None)
Quarter: 2011Q3

REPORT INFORMATION
  Report Type: 
  Country: None (occurrence: None)
  Receive Date: 20110725
  Receipt Date: 20110711
  Transmission Date: 20111222
  Serious: Yes (Other)
  Sender: FDA-Public Use
  Company Number: TPA2011A02522

PATIENT
  Age: 66 Year
  Sex: Male
  Weight: 83.0083 kg

DRUGS (1)
  1. ACTOS [Suspect]
     Indication: DIABETES MELLITUS INADEQUATE CONTROL
     Dosage: 15 MG. 1 IN 1 D, PER ORAL
     Route: 048
     Dates: start: 20100701, end: 20110301

REACTIONS (1)
  - BLADDER TRANSITIONAL CELL CARCINOMA [None]
